FAERS Safety Report 23415242 (Version 1)
Quarter: 2024Q1

REPORT INFORMATION
  Report Type: Spontaneous
  Country: IT (occurrence: IT)
  Receive Date: 20240118
  Receipt Date: 20240118
  Transmission Date: 20240410
  Serious: Yes (Death, Life-Threatening, Hospitalization, Other)
  Sender: FDA-Public Use
  Company Number: IT-SA-2023SA371201

PATIENT
  Age: 30 Year
  Sex: Female

DRUGS (3)
  1. ZOLPIDEM TARTRATE [Suspect]
     Active Substance: ZOLPIDEM TARTRATE
     Indication: Product used for unknown indication
     Dosage: UNK
     Route: 048
  2. CHLOROFORM [Suspect]
     Active Substance: CHLOROFORM
     Indication: Product used for unknown indication
     Dosage: UNK
     Route: 055
  3. CHLOROFORM [Suspect]
     Active Substance: CHLOROFORM
     Dosage: THE MAN PRACTICED FORCED EXTERNAL SUFFOCATION BY OCCLUSION...
     Route: 048

REACTIONS (4)
  - Altered state of consciousness [Fatal]
  - Exposure during pregnancy [Fatal]
  - Depressed level of consciousness [Unknown]
  - Hypoaesthesia [Unknown]
